FAERS Safety Report 4818810-5 (Version None)
Quarter: 2005Q4

REPORT INFORMATION
  Report Type: 
  Country: None (occurrence: None)
  Receive Date: 20051101
  Receipt Date: 20051024
  Transmission Date: 20060501
  Serious: Yes (Hospitalization)
  Sender: FDA-Public Use
  Company Number: 2005146469

PATIENT
  Age: 74 Year
  Sex: Male

DRUGS (5)
  1. NIFEDIPINE [Suspect]
     Indication: ILL-DEFINED DISORDER
     Dosage: UNKNOWN, ORAL
     Route: 048
  2. METOPROLOL TARTRATE [Concomitant]
  3. VASOTEC [Concomitant]
  4. VERAPAMIL [Concomitant]
  5. SYNTHROID [Concomitant]

REACTIONS (11)
  - ABDOMINAL ADHESIONS [None]
  - ANAEMIA [None]
  - DIVERTICULUM [None]
  - DUODENITIS [None]
  - FOREIGN BODY TRAUMA [None]
  - GASTRITIS [None]
  - HAEMORRHOIDS [None]
  - INTESTINAL ULCER [None]
  - SMALL INTESTINAL OBSTRUCTION [None]
  - SMALL INTESTINAL STENOSIS [None]
  - VARICES OESOPHAGEAL [None]
